FAERS Safety Report 6638428-1 (Version None)
Quarter: 2010Q1

REPORT INFORMATION
  Report Type: 
  Country: None (occurrence: None)
  Receive Date: 20100312
  Receipt Date: 20100226
  Transmission Date: 20100710
  Serious: No
  Sender: FDA-Public Use
  Company Number: 2010EU000044

PATIENT
  Age: 8 Year
  Sex: Female

DRUGS (1)
  1. TACROLIMUS [Suspect]
     Indication: DERMATITIS ATOPIC
     Dosage: TOPICAL
     Route: 061
     Dates: start: 20090220

REACTIONS (3)
  - APPENDIX DISORDER [None]
  - INFECTION [None]
  - SALMONELLOSIS [None]
